FAERS Safety Report 9308548 (Version 2)
Quarter: 2013Q3

REPORT INFORMATION
  Report Type: Spontaneous
  Country: US (occurrence: US)
  Receive Date: 20130524
  Receipt Date: 20130906
  Transmission Date: 20140515
  Serious: Yes (Congenital Anomaly, Other)
  Sender: FDA-Public Use
  Company Number: US-PFIZER INC-2013156855

PATIENT
  Sex: Male

DRUGS (8)
  1. ZOLOFT [Suspect]
     Dosage: UNK
     Route: 064
     Dates: start: 200004, end: 200007
  2. ZOLOFT [Suspect]
     Dosage: UNK
     Route: 064
     Dates: start: 200102, end: 200106
  3. ZOLOFT [Suspect]
     Dosage: UNK
     Route: 064
     Dates: start: 200104, end: 200201
  4. PRENATAL [Concomitant]
     Dosage: UNK
     Route: 064
  5. ALDARA [Concomitant]
     Dosage: UNK
     Route: 064
  6. SYNTHROID [Concomitant]
     Dosage: UNK
     Route: 064
  7. CEPHALEXIN [Concomitant]
     Dosage: UNK
     Route: 064
  8. PERCOCET [Concomitant]
     Dosage: UNK
     Route: 064

REACTIONS (4)
  - Maternal exposure during pregnancy [Unknown]
  - Hypospadias [Unknown]
  - Congenital anomaly [Unknown]
  - Premature baby [Unknown]
